APPROVED DRUG PRODUCT: PRIMIDONE
Active Ingredient: PRIMIDONE
Strength: 50MG
Dosage Form/Route: TABLET;ORAL
Application: A040717 | Product #001
Applicant: IMPAX LABORATORIES INC
Approved: Feb 12, 2008 | RLD: No | RS: No | Type: DISCN